FAERS Safety Report 7775457-9 (Version None)
Quarter: 2011Q3

REPORT INFORMATION
  Report Type: 
  Country: None (occurrence: None)
  Receive Date: 20110923
  Receipt Date: 20110921
  Transmission Date: 20111222
  Serious: Yes (Other)
  Sender: FDA-Public Use
  Company Number: PHHY2010US53568

PATIENT
  Sex: Female

DRUGS (12)
  1. VITAMIN B-12 [Concomitant]
     Dosage: UNK UKN, UNK
  2. VALIUM [Concomitant]
     Dosage: UNK UKN, UNK
  3. EXTAVIA [Suspect]
     Dosage: 0.25 MG, QOD (1 ML)
     Route: 058
     Dates: start: 20100615
  4. NAPROXEN [Concomitant]
     Dosage: UNK UKN, UNK
  5. IBUPROFEN [Concomitant]
     Dosage: UNK UKN, UNK
  6. EXTAVIA [Suspect]
     Indication: MULTIPLE SCLEROSIS
     Dosage: 0.187 MG, QOD
     Route: 058
     Dates: start: 20100616
  7. LUNESTA [Concomitant]
     Dosage: UNK UKN, UNK
  8. AMBIEN [Concomitant]
     Dosage: UNK UKN, UNK
  9. ANTIBIOTICS [Concomitant]
     Dosage: UNK UKN, UNK
  10. VITAMIN D [Concomitant]
     Dosage: UNK UKN, UNK
  11. CYMBALTA [Concomitant]
     Dosage: UNK UKN, UNK
  12. LEVOXYL [Concomitant]
     Dosage: UNK UKN, UNK

REACTIONS (22)
  - ASTIGMATISM [None]
  - ASTHENOPIA [None]
  - BACK PAIN [None]
  - HYPOAESTHESIA [None]
  - MEMORY IMPAIRMENT [None]
  - MIGRAINE [None]
  - HEADACHE [None]
  - STRESS [None]
  - INJECTION SITE PAIN [None]
  - MALAISE [None]
  - FATIGUE [None]
  - BRONCHITIS [None]
  - HYPOTHYROIDISM [None]
  - INJECTION SITE ERYTHEMA [None]
  - FEELING ABNORMAL [None]
  - VISION BLURRED [None]
  - ANXIETY [None]
  - MUSCULAR WEAKNESS [None]
  - WEIGHT INCREASED [None]
  - MULTIPLE SCLEROSIS RELAPSE [None]
  - PARAESTHESIA [None]
  - INJECTION SITE HAEMATOMA [None]
